FAERS Safety Report 19020760 (Version 2)
Quarter: 2021Q1

REPORT INFORMATION
  Report Type: Spontaneous
  Country: US (occurrence: US)
  Receive Date: 20210317
  Receipt Date: 20210322
  Transmission Date: 20210420
  Serious: Yes (Other)
  Sender: FDA-Public Use
  Company Number: US-PFIZER INC-2020099750

PATIENT
  Age: 82 Year
  Sex: Female

DRUGS (1)
  1. PREMARIN [Suspect]
     Active Substance: ESTROGENS, CONJUGATED
     Indication: CYSTITIS
     Dosage: UNK

REACTIONS (9)
  - Off label use [Unknown]
  - Product prescribing error [Unknown]
  - Alopecia [Unknown]
  - Dizziness [Unknown]
  - Condition aggravated [Unknown]
  - Disturbance in attention [Unknown]
  - Hypertension [Unknown]
  - Loss of consciousness [Unknown]
  - Drug effective for unapproved indication [Unknown]
